FAERS Safety Report 21674291 (Version 1)
Quarter: 2022Q4

REPORT INFORMATION
  Report Type: Spontaneous
  Country: IN (occurrence: IN)
  Receive Date: 20221202
  Receipt Date: 20221202
  Transmission Date: 20230113
  Serious: Yes (Hospitalization)
  Sender: FDA-Public Use
  Company Number: IN-MYLANLABS-2022M1134872

PATIENT
  Sex: Male

DRUGS (5)
  1. PHENYTOIN [Suspect]
     Active Substance: PHENYTOIN
     Indication: Partial seizures
     Dosage: 20 MILLIGRAM/KILOGRAM
     Route: 065
  2. PHENYTOIN [Suspect]
     Active Substance: PHENYTOIN
     Dosage: THERAPY INITIALLY CONTINUED AND THEN TAPERED OFF
     Route: 065
  3. TROPICAMIDE [Concomitant]
     Active Substance: TROPICAMIDE
     Indication: Drug therapy
     Dosage: UNK
     Route: 061
  4. MIDAZOLAM [Concomitant]
     Active Substance: MIDAZOLAM
     Indication: Sedative therapy
     Dosage: 0.1 MILLIGRAM/KILOGRAM (MIDAZOLAM WAS DILUTED IN 1ML OF 5% GLUCOSE SOLUTION....
     Route: 042
  5. DEXTROSE [Concomitant]
     Active Substance: DEXTROSE
     Indication: Vehicle solution use
     Dosage: 1 MILLILITER (MIDAZOLAM WAS DILUTED IN 1ML OF 5% GLUCOSE SOLUTION....
     Route: 042

REACTIONS (1)
  - Drug ineffective [Unknown]
